FAERS Safety Report 8320985-0 (Version None)
Quarter: 2012Q2

REPORT INFORMATION
  Report Type: 
  Country: None (occurrence: None)
  Receive Date: 20120430
  Receipt Date: 20120424
  Transmission Date: 20120825
  Serious: Yes (Other)
  Sender: FDA-Public Use
  Company Number: PHEH2012US008560

PATIENT
  Sex: Female

DRUGS (1)
  1. RECLAST [Suspect]
     Dosage: UNK UKN, UNK
     Route: 042
     Dates: start: 20110412

REACTIONS (7)
  - PNEUMONIA [None]
  - BRONCHITIS [None]
  - PYREXIA [None]
  - PRODUCTIVE COUGH [None]
  - DYSPNOEA [None]
  - FATIGUE [None]
  - LARYNGITIS [None]
